FAERS Safety Report 9885517 (Version 1)
Quarter: 2014Q1

REPORT INFORMATION
  Report Type: Spontaneous
  Country: FR (occurrence: FR)
  Receive Date: 20140210
  Receipt Date: 20140210
  Transmission Date: 20141002
  Serious: Yes (Life-Threatening, Hospitalization)
  Sender: FDA-Public Use
  Company Number: FR-PFIZER INC-2014032708

PATIENT
  Age: 53 Year
  Sex: Male

DRUGS (3)
  1. ADVIL [Suspect]
     Indication: TONSILLITIS
     Dosage: 400 MG, SINGLE
     Route: 048
     Dates: start: 20110513, end: 20110513
  2. SOLUPRED [Suspect]
     Indication: TONSILLITIS
     Dosage: 60 MG, 1X/DAY
     Route: 048
     Dates: start: 20110513, end: 20110514
  3. AUGMENTIN [Suspect]
     Indication: TONSILLITIS
     Dosage: 1 G, 2X/DAY
     Route: 048
     Dates: start: 20110514, end: 20110514

REACTIONS (6)
  - Cellulitis [Recovered/Resolved]
  - Torticollis [Recovered/Resolved]
  - Aphagia [Recovered/Resolved]
  - Trismus [Recovered/Resolved]
  - Erythema [Recovered/Resolved]
  - Peritonsillar abscess [Recovered/Resolved]
